FAERS Safety Report 18457141 (Version 1)
Quarter: 2020Q4

REPORT INFORMATION
  Report Type: Spontaneous
  Country: US (occurrence: US)
  Receive Date: 20201103
  Receipt Date: 20201103
  Transmission Date: 20210114
  Serious: No
  Sender: FDA-Public Use
  Company Number: US-TEVA-2020-US-1844932

PATIENT
  Age: 58 Year
  Sex: Female
  Weight: 100 kg

DRUGS (1)
  1. XANAX GENERIC [Suspect]
     Active Substance: ALPRAZOLAM
     Indication: SLEEP DISORDER
     Route: 065

REACTIONS (1)
  - Drug ineffective [Unknown]
